FAERS Safety Report 4579991-4 (Version None)
Quarter: 2005Q1

REPORT INFORMATION
  Report Type: 
  Country: None (occurrence: None)
  Receive Date: 20050214
  Receipt Date: 20050203
  Transmission Date: 20050727
  Serious: Yes (Hospitalization)
  Sender: FDA-Public Use
  Company Number: FR-ROCHE-394632

PATIENT
  Age: 3 Year
  Sex: Female

DRUGS (3)
  1. CELLCEPT [Suspect]
     Route: 065
  2. CORTICOIDS NOS [Concomitant]
  3. NEORAL [Concomitant]

REACTIONS (1)
  - ILEAL PERFORATION [None]
